FAERS Safety Report 8012099-4 (Version None)
Quarter: 2011Q4

REPORT INFORMATION
  Report Type: 
  Country: None (occurrence: None)
  Receive Date: 20111228
  Receipt Date: 20111214
  Transmission Date: 20120403
  Serious: Yes (Hospitalization)
  Sender: FDA-Public Use
  Company Number: PL-MYLANLABS-2011S1025994

PATIENT
  Age: 31 Year
  Sex: Female
  Weight: 80 kg

DRUGS (8)
  1. LAMIVUDINE [Suspect]
     Indication: HIV INFECTION
     Route: 065
  2. ZIDOVUDINE [Suspect]
     Indication: HIV INFECTION
     Route: 065
  3. SAQUINAVIR [Suspect]
     Indication: HIV INFECTION
     Route: 065
  4. METHADONE HCL [Concomitant]
     Dosage: 60MG DAILY
     Route: 065
  5. TENOFOVIR DISOPROXIL FUMARATE [Suspect]
     Indication: HIV INFECTION
     Route: 065
  6. NELFINAVIR MESYLATE [Suspect]
     Indication: HIV INFECTION
     Route: 065
  7. STAVUDINE [Suspect]
     Indication: HIV INFECTION
     Dosage: UNKNOWN
  8. RITONAVIR [Suspect]
     Indication: HIV INFECTION
     Route: 065

REACTIONS (8)
  - BLOOD ALKALINE PHOSPHATASE INCREASED [None]
  - BLOOD CALCIUM DECREASED [None]
  - URINARY TRACT INFECTION [None]
  - OSTEOPOROSIS [None]
  - GAMMA-GLUTAMYLTRANSFERASE INCREASED [None]
  - ASTHENIA [None]
  - SKIN ULCER [None]
  - PANCYTOPENIA [None]
